FAERS Safety Report 11923134 (Version 5)
Quarter: 2016Q2

REPORT INFORMATION
  Report Type: Report from Study
  Country: CA (occurrence: CA)
  Receive Date: 20160117
  Receipt Date: 20160502
  Transmission Date: 20160815
  Serious: Yes (Other)
  Sender: FDA-Public Use
  Company Number: CA-ROCHE-1359520

PATIENT
  Age: 75 Year
  Sex: Female
  Weight: 62.8 kg

DRUGS (12)
  1. METHOTREXATE [Concomitant]
     Active Substance: METHOTREXATE
  2. ACTEMRA [Suspect]
     Active Substance: TOCILIZUMAB
     Route: 042
     Dates: start: 20141217
  3. PREDNISONE. [Concomitant]
     Active Substance: PREDNISONE
  4. FOLIC ACID. [Concomitant]
     Active Substance: FOLIC ACID
  5. ACTEMRA [Suspect]
     Active Substance: TOCILIZUMAB
     Indication: TEMPORAL ARTERITIS
     Route: 042
     Dates: start: 20131008
  6. ACTEMRA [Suspect]
     Active Substance: TOCILIZUMAB
     Route: 042
     Dates: start: 20140702
  7. ASPIRIN. [Concomitant]
     Active Substance: ASPIRIN
  8. RISEDRONATE [Concomitant]
     Active Substance: RISEDRONATE SODIUM
  9. SULFATRIM [Concomitant]
     Active Substance: SULFAMETHOXAZOLE\TRIMETHOPRIM
  10. ACTEMRA [Suspect]
     Active Substance: TOCILIZUMAB
     Route: 042
     Dates: start: 20141120
  11. ACTEMRA [Suspect]
     Active Substance: TOCILIZUMAB
     Route: 042
     Dates: start: 20150506
  12. CORTISONE [Suspect]
     Active Substance: CORTISONE\HYDROCORTISONE
     Indication: PRODUCT USED FOR UNKNOWN INDICATION
     Route: 065

REACTIONS (16)
  - Oxygen saturation decreased [Unknown]
  - Oxygen saturation decreased [Unknown]
  - Blood pressure increased [Unknown]
  - Hypertension [Recovering/Resolving]
  - Weight decreased [Not Recovered/Not Resolved]
  - Pain [Unknown]
  - Blood cholesterol increased [Unknown]
  - Blood pressure diastolic decreased [Unknown]
  - Oedema peripheral [Not Recovered/Not Resolved]
  - Infusion related reaction [Unknown]
  - Joint stiffness [Unknown]
  - Gastroenteritis viral [Not Recovered/Not Resolved]
  - Off label use [Unknown]
  - Blood pressure fluctuation [Unknown]
  - Heart rate increased [Not Recovered/Not Resolved]
  - Anxiety [Unknown]

NARRATIVE: CASE EVENT DATE: 2014
